FAERS Safety Report 5884005-X (Version None)
Quarter: 2008Q3

REPORT INFORMATION
  Report Type: 
  Country: None (occurrence: None)
  Receive Date: 20080915
  Receipt Date: 20080904
  Transmission Date: 20090109
  Serious: Yes (Other)
  Sender: FDA-Public Use
  Company Number: US-ASTRAZENECA-2008AC02444

PATIENT
  Age: 26 Year
  Sex: Female

DRUGS (2)
  1. LIDOCAINE [Suspect]
     Indication: LABOUR PAIN
     Dosage: SUBARACHNOID TEST DOSE
     Route: 008
  2. LIDOCAINE [Suspect]
     Dosage: TEST DOSE
     Route: 042

REACTIONS (7)
  - BLOOD PRESSURE DECREASED [None]
  - CHEST DISCOMFORT [None]
  - DIPLEGIA [None]
  - DYSPNOEA [None]
  - HYPOAESTHESIA [None]
  - MUSCULAR WEAKNESS [None]
  - SPEECH DISORDER [None]
